FAERS Safety Report 8215672 (Version 4)
Quarter: 2013Q2

REPORT INFORMATION
  Report Type: Spontaneous
  Country: JP (occurrence: JP)
  Receive Date: 20111031
  Receipt Date: 20130619
  Transmission Date: 20140414
  Serious: Yes (Hospitalization)
  Sender: FDA-Public Use
  Company Number: JP-GLAXOSMITHKLINE-B0702133A

PATIENT
  Age: 33 Year
  Sex: Male
  Weight: 83 kg

DRUGS (5)
  1. LAMICTAL [Suspect]
     Indication: EPILEPSY
     Dosage: 25MG PER DAY
     Route: 048
     Dates: start: 20110130, end: 20110212
  2. LAMICTAL [Suspect]
     Indication: EPILEPSY
     Dosage: 25MG PER DAY
     Route: 048
     Dates: start: 20110213, end: 20110221
  3. SELENICA-R [Concomitant]
     Indication: EPILEPSY
     Route: 048
     Dates: start: 20060826, end: 20110129
  4. SELENICA-R [Concomitant]
     Indication: EPILEPSY
     Route: 048
     Dates: start: 20110130
  5. PROHEPARUM [Concomitant]
     Indication: HEPATIC FUNCTION ABNORMAL
     Dosage: 2IUAX TWICE PER DAY
     Route: 048
     Dates: start: 20110130, end: 20110221

REACTIONS (21)
  - Toxic epidermal necrolysis [Recovered/Resolved]
  - Epidermal necrosis [Recovered/Resolved]
  - Conjunctival erosion [Recovered/Resolved]
  - Blister [Recovered/Resolved]
  - Blister [Recovered/Resolved]
  - Rash [Recovered/Resolved]
  - Skin exfoliation [Recovered/Resolved]
  - Skin erosion [Recovered/Resolved]
  - Oral mucosa erosion [Recovered/Resolved]
  - Vulvar erosion [Recovered/Resolved]
  - Skin oedema [Recovered/Resolved]
  - Perivascular dermatitis [Recovered/Resolved]
  - Malaise [Recovered/Resolved]
  - Pyrexia [Recovered/Resolved]
  - Generalised erythema [Recovered/Resolved]
  - Skin exfoliation [Recovered/Resolved]
  - Eyelid erosion [Recovered/Resolved]
  - Eyelid exfoliation [Recovered/Resolved]
  - Scab [Recovered/Resolved]
  - Anal erosion [Recovered/Resolved]
  - Lip erosion [Recovered/Resolved]
